FAERS Safety Report 7126177-5 (Version None)
Quarter: 2010Q4

REPORT INFORMATION
  Report Type: 
  Country: None (occurrence: None)
  Receive Date: 20101129
  Receipt Date: 20101115
  Transmission Date: 20110411
  Serious: Yes (Other)
  Sender: FDA-Public Use
  Company Number: US-ASTRAZENECA-2010SE54495

PATIENT
  Age: 65 Year
  Sex: Female

DRUGS (5)
  1. NEXIUM [Suspect]
     Indication: GASTROOESOPHAGEAL REFLUX DISEASE
     Route: 048
  2. ASPIRIN [Concomitant]
     Dosage: UNKNOWN DOSE DAILY
  3. CALTRATE [Concomitant]
  4. FISH OIL [Concomitant]
  5. FOSAMAX [Concomitant]

REACTIONS (1)
  - BREAST CANCER [None]
